FAERS Safety Report 9645490 (Version 2)
Quarter: 2013Q4

REPORT INFORMATION
  Report Type: Spontaneous
  Country: US (occurrence: US)
  Receive Date: 20131025
  Receipt Date: 20131106
  Transmission Date: 20140711
  Serious: No
  Sender: FDA-Public Use
  Company Number: US-BAXTER-2013BAX041530

PATIENT
  Sex: Male

DRUGS (15)
  1. GAMMAGARD LIQUID [Suspect]
     Indication: SELECTIVE IGG SUBCLASS DEFICIENCY
     Route: 058
     Dates: start: 201302
  2. GAMMAGARD LIQUID [Suspect]
     Route: 058
     Dates: start: 20130215
  3. GAMMAGARD LIQUID [Suspect]
     Route: 058
     Dates: start: 20130225
  4. GAMMAGARD LIQUID [Suspect]
     Route: 058
     Dates: start: 20130304
  5. GAMMAGARD LIQUID [Suspect]
     Route: 058
     Dates: start: 20130308
  6. GAMMAGARD LIQUID [Suspect]
     Route: 058
     Dates: start: 20130315
  7. GAMMAGARD LIQUID [Suspect]
     Route: 058
     Dates: start: 20130322
  8. GAMMAGARD LIQUID [Suspect]
     Route: 058
     Dates: start: 20130403
  9. GAMMAGARD LIQUID [Suspect]
     Route: 058
     Dates: start: 20130501
  10. GAMMAGARD LIQUID [Suspect]
     Route: 058
     Dates: start: 20130529
  11. GAMMAGARD LIQUID [Suspect]
     Route: 058
     Dates: start: 20130614
  12. GAMMAGARD LIQUID [Suspect]
     Route: 058
     Dates: start: 20130627
  13. GAMMAGARD LIQUID [Suspect]
     Route: 058
     Dates: start: 20130729
  14. GAMMAGARD LIQUID [Suspect]
     Route: 058
     Dates: start: 20130821
  15. BENADRYL [Concomitant]
     Indication: PREMEDICATION
     Route: 065

REACTIONS (2)
  - Agitation [Recovered/Resolved]
  - Infusion site pain [Recovered/Resolved]
